FAERS Safety Report 24710584 (Version 1)
Quarter: 2024Q4

REPORT INFORMATION
  Report Type: Report from Study
  Country: BR (occurrence: BR)
  Receive Date: 20241209
  Receipt Date: 20241209
  Transmission Date: 20250115
  Serious: Yes (Death, Other)
  Sender: BIOVITRUM
  Company Number: BR-AstraZeneca-CH-00760758A

PATIENT
  Age: 11 Month
  Sex: Male

DRUGS (1)
  1. PALIVIZUMAB [Suspect]
     Active Substance: PALIVIZUMAB
     Indication: Respiratory syncytial virus test
     Route: 030

REACTIONS (1)
  - Death [Fatal]

NARRATIVE: CASE EVENT DATE: 20241126
